FAERS Safety Report 17376533 (Version 2)
Quarter: 2020Q1

REPORT INFORMATION
  Report Type: Spontaneous
  Country: DE (occurrence: DE)
  Receive Date: 20200206
  Receipt Date: 20200210
  Transmission Date: 20200409
  Serious: Yes (Death, Hospitalization)
  Sender: FDA-Public Use
  Company Number: NVSC2020DE024024

PATIENT
  Age: 69 Year
  Sex: Male
  Weight: 73.2 kg

DRUGS (2)
  1. VARGATEF [Suspect]
     Active Substance: NINTEDANIB
     Indication: LUNG ADENOCARCINOMA
     Dosage: 400 MG, QD
     Route: 048
     Dates: start: 20190903
  2. DOCETAXEL. [Suspect]
     Active Substance: DOCETAXEL
     Indication: LUNG ADENOCARCINOMA
     Dosage: 1 OT, QD (FORM OF ADMIN: LIQUIDTOTAL DAILY DOSE:  75 MG/M2 BODY SURFACE AREA)
     Route: 042
     Dates: start: 20190902

REACTIONS (7)
  - Dyspnoea [Not Recovered/Not Resolved]
  - Alopecia [Recovered/Resolved]
  - Fatigue [Unknown]
  - Pneumonia [Fatal]
  - Pneumonitis [Fatal]
  - Pyrexia [Not Recovered/Not Resolved]
  - Diarrhoea [Not Recovered/Not Resolved]

NARRATIVE: CASE EVENT DATE: 20190916
